FAERS Safety Report 7964142-6 (Version None)
Quarter: 2011Q4

REPORT INFORMATION
  Report Type: 
  Country: None (occurrence: None)
  Receive Date: 20111206
  Receipt Date: 20111123
  Transmission Date: 20120403
  Serious: Yes (Other)
  Sender: FDA-Public Use
  Company Number: GER/GER/11/0022086

PATIENT
  Age: 20 Year
  Sex: Female
  Weight: 53 kg

DRUGS (4)
  1. LEVOCETIRIZINE HEXAL (LEVOCETIRIZINE) [Suspect]
     Indication: PRODUCT USED FOR UNKNOWN INDICATION
     Dosage: 7 DOSAGE FORMS, ORAL
     Route: 048
     Dates: start: 20111123
  2. GRIPPOSTAD C (GRIPPOSTAD C) [Suspect]
     Indication: PRODUCT USED FOR UNKNOWN INDICATION
     Dosage: 4 DOSAGE FORMS, ORAL
     Route: 048
     Dates: start: 20111123
  3. IBUPROFEN [Suspect]
     Indication: PRODUCT USED FOR UNKNOWN INDICATION
     Dosage: 10 DOSAGE FORMS, ORAL
     Route: 048
     Dates: start: 20111123
  4. NAPROXEN [Suspect]
     Indication: PRODUCT USED FOR UNKNOWN INDICATION
     Dosage: 10 DOSAGE FORMS, ORAL
     Route: 048
     Dates: start: 20111123

REACTIONS (2)
  - TREMOR [None]
  - MULTIPLE DRUG OVERDOSE INTENTIONAL [None]
